FAERS Safety Report 25813086 (Version 1)
Quarter: 2025Q3

REPORT INFORMATION
  Report Type: Report from Study
  Country: CN (occurrence: CN)
  Receive Date: 20250917
  Receipt Date: 20250917
  Transmission Date: 20251021
  Serious: Yes (Other)
  Sender: VERITY PHARMACEUTICALS INC.
  Company Number: CN-VER-202500042

PATIENT
  Sex: Female

DRUGS (1)
  1. TRIPTORELIN [Suspect]
     Active Substance: TRIPTORELIN
     Indication: Ovulation induction
     Route: 065

REACTIONS (2)
  - Abortion spontaneous [Unknown]
  - Ovarian hyperstimulation syndrome [Unknown]
